FAERS Safety Report 9257115 (Version 2)
Quarter: 2014Q1

REPORT INFORMATION
  Report Type: Spontaneous
  Country: US (occurrence: None)
  Receive Date: 20121212
  Receipt Date: 20130314
  Transmission Date: 20141002
  Serious: Yes (Other)
  Sender: FDA-Public Use
  Company Number: 1208USA012405

PATIENT
  Age: 55 Year
  Sex: Female

DRUGS (3)
  1. VICTRELIS [Suspect]
     Indication: CHRONIC HEPATITIS C
     Dosage: UNK MG, UNK, ORAL
     Route: 048
     Dates: start: 20120722
  2. RIBASPHERE [Suspect]
     Indication: HEPATITIS C
  3. PEGASYS [Suspect]
     Indication: HEPATITIS C
     Dates: start: 20120624, end: 2012

REACTIONS (19)
  - Haemoglobin decreased [None]
  - Swelling face [None]
  - Crying [None]
  - Chills [None]
  - Influenza like illness [None]
  - Headache [None]
  - Fatigue [None]
  - Local swelling [None]
  - Arthralgia [None]
  - Fatigue [None]
  - Nausea [None]
  - Muscle spasms [None]
  - Memory impairment [None]
  - Disturbance in attention [None]
  - Dysgeusia [None]
  - Platelet count decreased [None]
  - White blood cell count decreased [None]
  - Anaemia [None]
  - Depression [None]
